FAERS Safety Report 5825764-1 (Version None)
Quarter: 2008Q3

REPORT INFORMATION
  Report Type: 
  Country: None (occurrence: None)
  Receive Date: 20080723
  Receipt Date: 20080714
  Transmission Date: 20090109
  Serious: Yes (Other)
  Sender: FDA-Public Use
  Company Number: JHP200800188

PATIENT
  Age: 24 Year
  Sex: Female

DRUGS (12)
  1. PITOCIN [Suspect]
     Indication: POSTPARTUM HAEMORRHAGE
     Dosage: INFUSION(WITH NO BOLUS), INTRAVENOUS; 10 U, INTRAMUSCULAR
  2. TOPIRAMATE [Concomitant]
  3. INSULIN (INSULIN) [Concomitant]
  4. MAGNESIUM SULFATE [Concomitant]
  5. SODIUM CITRATE [Concomitant]
  6. METOCLOPRAMIDE [Concomitant]
  7. FAMOTIDINE [Concomitant]
  8. LABETALOL HCL [Concomitant]
  9. BUPIVACAINE [Concomitant]
  10. FENTANYL [Concomitant]
  11. MORPHINE [Concomitant]
  12. PHENYLEPHRINE (PHENYLEPHRINE) [Concomitant]

REACTIONS (1)
  - HYPOTENSION [None]
